FAERS Safety Report 6252356-5 (Version None)
Quarter: 2009Q2

REPORT INFORMATION
  Report Type: 
  Country: None (occurrence: None)
  Receive Date: 20090629
  Receipt Date: 20090629
  Transmission Date: 20091009
  Serious: No
  Sender: FDA-Public Use
  Company Number: None

PATIENT
  Sex: Female
  Weight: 77.1115 kg

DRUGS (2)
  1. TRAMADOL HCL [Suspect]
     Indication: BACK PAIN
     Dosage: 50MG ONCE-TWICE Q40PRN PO
     Route: 048
     Dates: start: 20090501
  2. TRAMADOL HCL [Suspect]
     Indication: INTERVERTEBRAL DISC DEGENERATION
     Dosage: 50MG ONCE-TWICE Q40PRN PO
     Route: 048
     Dates: start: 20090501

REACTIONS (2)
  - DRUG EFFECT DECREASED [None]
  - PRODUCT SUBSTITUTION ISSUE [None]
